FAERS Safety Report 6000026-0 (Version None)
Quarter: 2008Q4

REPORT INFORMATION
  Report Type: 
  Country: None (occurrence: None)
  Receive Date: 20081215
  Receipt Date: 20081205
  Transmission Date: 20090506
  Serious: Yes (Hospitalization)
  Sender: FDA-Public Use
  Company Number: A0725150A

PATIENT
  Age: 56 Year
  Sex: Female
  Weight: 81.8 kg

DRUGS (3)
  1. AVANDIA [Suspect]
     Dosage: 4MG TWICE PER DAY
     Route: 065
     Dates: start: 20000101, end: 20050601
  2. ACTOS [Concomitant]
     Dates: start: 19980101, end: 20010101
  3. GLUCOPHAGE [Concomitant]
     Dates: start: 19900101

REACTIONS (2)
  - CARDIAC FAILURE CONGESTIVE [None]
  - HEART INJURY [None]
